FAERS Safety Report 12573561 (Version 2)
Quarter: 2016Q3

REPORT INFORMATION
  Report Type: Report from Study
  Country: JP (occurrence: JP)
  Receive Date: 20160720
  Receipt Date: 20160910
  Transmission Date: 20161109
  Serious: Yes (Hospitalization)
  Sender: FDA-Public Use
  Company Number: JP-UCBSA-2015027166

PATIENT
  Age: 7 Year
  Sex: Male
  Weight: 25.5 kg

DRUGS (7)
  1. LEVETIRACETAM. [Suspect]
     Active Substance: LEVETIRACETAM
     Dosage: 250 MG, 2X/DAY (BID)
     Route: 048
     Dates: start: 20150422, end: 20150425
  2. LEVETIRACETAM. [Suspect]
     Active Substance: LEVETIRACETAM
     Dosage: 375 MG, 2X/DAY (BID)
     Route: 048
     Dates: start: 20150426, end: 20150428
  3. LEVETIRACETAM. [Suspect]
     Active Substance: LEVETIRACETAM
     Dosage: 500 MG, 2X/DAY (BID)
     Route: 048
     Dates: start: 20150429, end: 20150512
  4. LEVETIRACETAM. [Suspect]
     Active Substance: LEVETIRACETAM
     Indication: COMPLEX PARTIAL SEIZURES
     Dosage: 250 MG, ONCE DAILY (QD)
     Route: 048
     Dates: start: 20150403, end: 20150421
  5. TEGRETOL [Concomitant]
     Active Substance: CARBAMAZEPINE
     Indication: COMPLEX PARTIAL SEIZURES
     Dosage: 250 MG, DAILY
     Dates: end: 20160525
  6. LEVETIRACETAM. [Suspect]
     Active Substance: LEVETIRACETAM
     Dosage: 350 MG, 2X/DAY (BID)
     Route: 048
     Dates: start: 20150513, end: 20150616
  7. LEVETIRACETAM. [Suspect]
     Active Substance: LEVETIRACETAM
     Dosage: 175 MG, 2X/DAY (BID)
     Route: 048
     Dates: start: 20150617, end: 20150623

REACTIONS (4)
  - Agitation [Recovered/Resolved]
  - Psychogenic seizure [Recovered/Resolved]
  - Somnolence [Unknown]
  - Abnormal behaviour [Recovered/Resolved]

NARRATIVE: CASE EVENT DATE: 2015
